FAERS Safety Report 9844520 (Version 1)
Quarter: 2014Q1

REPORT INFORMATION
  Report Type: Spontaneous
  Country: US (occurrence: US)
  Receive Date: 20140127
  Receipt Date: 20140127
  Transmission Date: 20141002
  Serious: No
  Sender: FDA-Public Use
  Company Number: US-009507513-1401USA008827

PATIENT
  Sex: Male

DRUGS (2)
  1. PROPECIA [Suspect]
     Indication: ANDROGENETIC ALOPECIA
     Dosage: UNK, QD, DURING THE FIRST 10 YEARS
     Route: 048
     Dates: start: 2002
  2. PROPECIA [Suspect]
     Dosage: RECENTLY 3 TO 4 TABLETS WEEKLY
     Route: 048

REACTIONS (3)
  - Sperm concentration decreased [Unknown]
  - Ejaculation failure [Unknown]
  - Inappropriate schedule of drug administration [Unknown]
